FAERS Safety Report 18605054 (Version 2)
Quarter: 2021Q1

REPORT INFORMATION
  Report Type: Spontaneous
  Country: US (occurrence: US)
  Receive Date: 20201211
  Receipt Date: 20210317
  Transmission Date: 20210419
  Serious: Yes (Death, Hospitalization, Other)
  Sender: FDA-Public Use
  Company Number: US-TAKEDA-2020TUS053915

PATIENT
  Sex: Male
  Weight: 59.86 kg

DRUGS (19)
  1. VITAMIN D3 [Concomitant]
     Active Substance: CHOLECALCIFEROL
  2. SODIUM [Concomitant]
     Active Substance: SODIUM
  3. PREDNISONE [PREDNISONE ACETATE] [Concomitant]
     Active Substance: PREDNISONE ACETATE
  4. DIPHENHYDRAMINE. [Concomitant]
     Active Substance: DIPHENHYDRAMINE
  5. DRONABINOL. [Concomitant]
     Active Substance: DRONABINOL
  6. CURCUMIN [Concomitant]
     Active Substance: CURCUMIN
  7. OCUVITE [ASCORBIC ACID;BETACAROTENE;COPPER;TOCOFERSOLAN;ZINC] [Concomitant]
  8. HEPARIN [Concomitant]
     Active Substance: HEPARIN SODIUM
  9. GABAPENTIN. [Concomitant]
     Active Substance: GABAPENTIN
  10. TRAZODONE [Concomitant]
     Active Substance: TRAZODONE HYDROCHLORIDE
  11. ZOLPIDEM [Concomitant]
     Active Substance: ZOLPIDEM TARTRATE
  12. ATENOLOL. [Concomitant]
     Active Substance: ATENOLOL
  13. ACIDOPHILUS [Concomitant]
     Active Substance: LACTOBACILLUS ACIDOPHILUS
  14. GAMMAGARD LIQUID [Suspect]
     Active Substance: HUMAN IMMUNOGLOBULIN G
     Indication: POLYMYOSITIS
     Dosage: 40 GRAM, QD
     Route: 042
     Dates: start: 20170508
  15. L?ARGININE [ARGININE] [Concomitant]
     Active Substance: ARGININE
  16. AMBIEN CR [Concomitant]
     Active Substance: ZOLPIDEM TARTRATE
  17. ACETAMINOPHEN. [Concomitant]
     Active Substance: ACETAMINOPHEN
  18. CHLORIDE [Concomitant]
     Active Substance: CHLORIDE ION
  19. EPINEPHRINE. [Concomitant]
     Active Substance: EPINEPHRINE

REACTIONS (5)
  - Product use in unapproved indication [Unknown]
  - Fall [Unknown]
  - Hospitalisation [Unknown]
  - Death [Fatal]
  - Arthralgia [Unknown]
